FAERS Safety Report 14510394 (Version 3)
Quarter: 2018Q3

REPORT INFORMATION
  Report Type: Report from Study
  Country: US (occurrence: US)
  Receive Date: 20180209
  Receipt Date: 20180705
  Transmission Date: 20181010
  Serious: Yes (Death, Hospitalization, Other)
  Sender: FDA-Public Use
  Company Number: US-BAYER-2018-021609

PATIENT
  Age: 84 Year
  Sex: Male

DRUGS (3)
  1. ADEMPAS [Suspect]
     Active Substance: RIOCIGUAT
     Dosage: 1.0 MG, TID
  2. ADEMPAS [Suspect]
     Active Substance: RIOCIGUAT
     Dosage: 1.0 MG, TID
  3. ADEMPAS [Suspect]
     Active Substance: RIOCIGUAT
     Dosage: 0.5 MG, UNK

REACTIONS (18)
  - Hospitalisation [None]
  - Oedema [None]
  - Facial bones fracture [None]
  - Dyspnoea [None]
  - Hypotension [None]
  - Death [Fatal]
  - Blood pressure decreased [None]
  - Drug intolerance [None]
  - Atrial fibrillation [None]
  - Right ventricular failure [None]
  - Heart rate increased [None]
  - Cardiac valve disease [None]
  - Fatigue [None]
  - Dizziness [None]
  - Peripheral swelling [None]
  - Cystitis [None]
  - Fall [None]
  - Oxygen saturation decreased [None]

NARRATIVE: CASE EVENT DATE: 20180116
